FAERS Safety Report 17937274 (Version 1)
Quarter: 2020Q2

REPORT INFORMATION
  Report Type: Spontaneous
  Country: US (occurrence: US)
  Receive Date: 20200624
  Receipt Date: 20200624
  Transmission Date: 20200714
  Serious: No
  Sender: FDA-Public Use
  Company Number: US-GALDERMA-US2020025850

PATIENT
  Sex: Female

DRUGS (1)
  1. DIFFERIN GEL [Suspect]
     Active Substance: ADAPALENE
     Indication: ACNE
     Dosage: 0.1%
     Route: 061

REACTIONS (8)
  - Skin injury [Unknown]
  - Scab [Unknown]
  - Rash papular [Unknown]
  - Erythema [Unknown]
  - Scar [Unknown]
  - Pain of skin [Unknown]
  - Dermal cyst [Unknown]
  - Dermatitis [Unknown]
